FAERS Safety Report 5804739-2 (Version None)
Quarter: 2008Q3

REPORT INFORMATION
  Report Type: 
  Country: None (occurrence: None)
  Receive Date: 20080709
  Receipt Date: 20080703
  Transmission Date: 20090109
  Serious: Yes (Hospitalization)
  Sender: FDA-Public Use
  Company Number: US-JNJFOC-20080302575

PATIENT
  Sex: Female
  Weight: 118.84 kg

DRUGS (1)
  1. ORTHO EVRA [Suspect]
     Indication: CONTRACEPTION

REACTIONS (3)
  - DEEP VEIN THROMBOSIS [None]
  - FOOT FRACTURE [None]
  - PULMONARY EMBOLISM [None]
